FAERS Safety Report 18789600 (Version 3)
Quarter: 2021Q1

REPORT INFORMATION
  Report Type: Report from Study
  Country: None (occurrence: US)
  Receive Date: 20210125
  Receipt Date: 20210308
  Transmission Date: 20210419
  Serious: Yes (Hospitalization, Other)
  Sender: FDA-Public Use
  Company Number: US-ABBVIE-21K-163-3737700-00

PATIENT
  Age: 75 Year
  Sex: Female

DRUGS (2)
  1. HUMIRA [Suspect]
     Active Substance: ADALIMUMAB
     Route: 058
     Dates: start: 2018
  2. HUMIRA [Suspect]
     Active Substance: ADALIMUMAB
     Indication: COLITIS ULCERATIVE
     Route: 058
     Dates: start: 2018

REACTIONS (7)
  - Dehydration [Unknown]
  - Post procedural complication [Unknown]
  - Abscess jaw [Recovered/Resolved]
  - Diarrhoea [Unknown]
  - Bacterial infection [Recovering/Resolving]
  - Tooth extraction [Unknown]
  - Post procedural swelling [Recovered/Resolved]

NARRATIVE: CASE EVENT DATE: 202011
